FAERS Safety Report 5423259-0 (Version None)
Quarter: 2007Q3

REPORT INFORMATION
  Report Type: 
  Country: None (occurrence: None)
  Receive Date: 20070730
  Receipt Date: 20070215
  Transmission Date: 20080115
  Serious: Yes (Other)
  Sender: FDA-Public Use
  Company Number: 200710227BWH

PATIENT
  Age: 61 Year
  Sex: Female
  Weight: 78.0187 kg

DRUGS (3)
  1. AVELOX [Suspect]
     Indication: SINUSITIS
     Dosage: 400 MG, QD, ORAL
     Route: 048
     Dates: start: 20061104, end: 20061124
  2. ELAVIL [Concomitant]
  3. TRIAVIL [Concomitant]

REACTIONS (1)
  - HEPATITIS [None]
